FAERS Safety Report 4662124-3 (Version None)
Quarter: 2005Q2

REPORT INFORMATION
  Report Type: 
  Country: None (occurrence: None)
  Receive Date: 20050512
  Receipt Date: 20050430
  Transmission Date: 20051028
  Serious: Yes (Hospitalization, Other)
  Sender: FDA-Public Use
  Company Number: 2005045792

PATIENT
  Age: 67 Year
  Sex: Female
  Weight: 72.5755 kg

DRUGS (17)
  1. NEURONTIN [Suspect]
     Indication: DIABETIC COMPLICATION
     Dosage: 200 MG (100 MG, 2 IN 1 D), ORAL
     Route: 048
  2. FLUCONAZOLE [Concomitant]
  3. ALLEGRA-D [Concomitant]
  4. ROSIGLITAZONE MALEATE [Concomitant]
  5. METOPROLOL TARTRATE [Concomitant]
  6. ENALAPRIL MALEATE [Concomitant]
  7. WARFARIN SODIUM [Concomitant]
  8. FAMOTIDINE [Concomitant]
  9. GRANISETRON (GRANISETRON) [Concomitant]
  10. LANSOPRAZOLE [Concomitant]
  11. ONDANSETRON HCL [Concomitant]
  12. PYRIDOXINE HCL [Concomitant]
  13. VICODIN [Concomitant]
  14. ACETAMINOPHEN [Concomitant]
  15. TEMAZEPAM [Concomitant]
  16. PROMETHAZINE HYDROCHLORIDE TAB [Concomitant]
  17. CHEMOTHERAPY NOS (CHEMOTHERAPY NOS) [Concomitant]

REACTIONS (3)
  - BACTERIAL INFECTION [None]
  - FUNGAL INFECTION [None]
  - PNEUMONIA [None]
